FAERS Safety Report 22060394 (Version 1)
Quarter: 2023Q1

REPORT INFORMATION
  Report Type: Spontaneous
  Country: None (occurrence: CA)
  Receive Date: 20230303
  Receipt Date: 20230303
  Transmission Date: 20230417
  Serious: Yes (Other)
  Sender: FDA-Public Use
  Company Number: CA-B.Braun Medical Inc.-2138671

PATIENT
  Age: 15 Year
  Sex: Female
  Weight: 54 kg

DRUGS (1)
  1. DEXTROSE [Suspect]
     Active Substance: DEXTROSE

REACTIONS (2)
  - Lactic acidosis [Recovered/Resolved]
  - Vitamin B1 deficiency [Recovered/Resolved]
